FAERS Safety Report 22099696 (Version 3)
Quarter: 2024Q1

REPORT INFORMATION
  Report Type: Spontaneous
  Country: US (occurrence: US)
  Receive Date: 20230315
  Receipt Date: 20240207
  Transmission Date: 20240410
  Serious: No
  Sender: FDA-Public Use
  Company Number: US-PFIZER INC-PV202300045453

PATIENT
  Age: 65 Year
  Sex: Female

DRUGS (3)
  1. IBRANCE [Suspect]
     Active Substance: PALBOCICLIB
     Dosage: 125 MG, 1X/DAY
     Route: 048
  2. IBRANCE [Suspect]
     Active Substance: PALBOCICLIB
     Dosage: 125 MG, CYCLIC,TAKE ONE TABLET BY MOUTH DAILY ON DAYS 1-21 OR EACH 28 DAY CYCLE.
     Route: 048
  3. PALBOCICLIB [Suspect]
     Active Substance: PALBOCICLIB
     Dosage: 125 MG, CYCLIC,DAILY, ON DAYS 1-21 OF 28-DAY CYCLE. TAKE WHOLE WITH WATER WITH OR WITHOUT FOOD,
     Route: 048

REACTIONS (1)
  - Illness [Unknown]
